FAERS Safety Report 25321660 (Version 1)
Quarter: 2025Q2

REPORT INFORMATION
  Report Type: Spontaneous
  Country: JP (occurrence: JP)
  Receive Date: 20250516
  Receipt Date: 20250516
  Transmission Date: 20250717
  Serious: Yes (Other)
  Sender: AMGEN
  Company Number: JP-AMGEN-JPNSP2025020039

PATIENT
  Age: 65 Year
  Sex: Female

DRUGS (2)
  1. EVENITY [Suspect]
     Active Substance: ROMOSOZUMAB-AQQG
     Indication: Osteoporosis
     Route: 058
     Dates: start: 20250129
  2. BUFFERIN [Concomitant]
     Active Substance: ASPIRIN

REACTIONS (11)
  - Pulmonary oedema [Unknown]
  - Migraine [Recovering/Resolving]
  - Hyperhidrosis [Recovering/Resolving]
  - Asthenia [Recovering/Resolving]
  - Feeling abnormal [Recovering/Resolving]
  - Nausea [Recovering/Resolving]
  - Hyperventilation [Recovering/Resolving]
  - Heart rate increased [Recovering/Resolving]
  - Loose tooth [Unknown]
  - Gingival swelling [Unknown]
  - Renal scan abnormal [Unknown]

NARRATIVE: CASE EVENT DATE: 20250101
